FAERS Safety Report 10283374 (Version 1)
Quarter: 2014Q3

REPORT INFORMATION
  Report Type: Spontaneous
  Country: US (occurrence: None)
  Receive Date: 20140702
  Receipt Date: 20140702
  Transmission Date: 20150326
  Serious: Yes (Other)
  Sender: FDA-Public Use
  Company Number: 2014P1003497

PATIENT
  Age: 23 Year
  Sex: Female
  Weight: 77.1 kg

DRUGS (3)
  1. HERBAL NOS [Suspect]
     Active Substance: HERBALS
     Indication: NUTRITIONAL SUPPLEMENTATION
     Route: 048
     Dates: start: 201403, end: 201403
  2. HERBAL NOS [Suspect]
     Active Substance: HERBALS
     Indication: NUTRITIONAL SUPPLEMENTATION
     Route: 048
     Dates: start: 201403, end: 201403
  3. TWO UNSPECIFIED MEDICATIONS [Concomitant]

REACTIONS (7)
  - Nausea [None]
  - Abdominal pain [None]
  - Vomiting [None]
  - Chest pain [None]
  - Chest discomfort [None]
  - Dizziness [None]
  - Headache [None]

NARRATIVE: CASE EVENT DATE: 201403
